FAERS Safety Report 8338811-2 (Version None)
Quarter: 2012Q2

REPORT INFORMATION
  Report Type: 
  Country: None (occurrence: None)
  Receive Date: 20120505
  Receipt Date: 20120425
  Transmission Date: 20120825
  Serious: Yes (Death, Hospitalization, Other)
  Sender: FDA-Public Use
  Company Number: GB-ACCORD-013313

PATIENT
  Sex: Female

DRUGS (5)
  1. ETOPOSIDE [Suspect]
     Indication: BRAIN CANCER METASTATIC
     Route: 065
  2. CAPECITABINE [Suspect]
     Dosage: 2000 MG/M2 IN TWO DIVIDED DOSES GIVEN FOR 2 WEEKS OUT OF EVERY 3.
     Route: 065
     Dates: start: 20110222
  3. LAPATINIB [Suspect]
     Route: 065
     Dates: start: 20110222, end: 20110921
  4. CARBOPLATIN [Suspect]
     Route: 065
  5. DEXAMETHASONE [Suspect]
     Route: 065

REACTIONS (15)
  - PYURIA [None]
  - NAUSEA [None]
  - MOUTH ULCERATION [None]
  - DRUG INEFFECTIVE [None]
  - OFF LABEL USE [None]
  - INGROWING NAIL [None]
  - URINARY TRACT DISORDER [None]
  - TREATMENT NONCOMPLIANCE [None]
  - NEUTROPHILIA [None]
  - FATIGUE [None]
  - BREAST CANCER METASTATIC [None]
  - DYSPEPSIA [None]
  - VOMITING [None]
  - NAIL INFECTION [None]
  - DIARRHOEA [None]
